FAERS Safety Report 4847298-3 (Version None)
Quarter: 2005Q4

REPORT INFORMATION
  Report Type: 
  Country: None (occurrence: None)
  Receive Date: 20051202
  Receipt Date: 20051121
  Transmission Date: 20060501
  Serious: Yes (Death, Other)
  Sender: FDA-Public Use
  Company Number: 2005150303

PATIENT
  Sex: Male

DRUGS (4)
  1. XALATAN [Suspect]
     Indication: GLAUCOMA
     Dosage: (DAILY), OPHTHALMIC
     Route: 047
     Dates: start: 20010101, end: 20020101
  2. MEDICINES FOR DIABETES (ORAL ANTIDIABETICS) [Concomitant]
  3. MEDICINES FOR HEART PROBLEMS (DRUG, UNSPECIFIED) [Concomitant]
  4. INSULIN [Concomitant]

REACTIONS (3)
  - BLINDNESS [None]
  - CARDIAC DISORDER [None]
  - DRUG INEFFECTIVE [None]
